FAERS Safety Report 8407174-6 (Version None)
Quarter: 2012Q2

REPORT INFORMATION
  Report Type: 
  Country: None (occurrence: None)
  Receive Date: 20120604
  Receipt Date: 20120530
  Transmission Date: 20120825
  Serious: Yes (Hospitalization)
  Sender: FDA-Public Use
  Company Number: FR-ROCHE-1073873

PATIENT
  Age: 59 Year
  Sex: Male

DRUGS (6)
  1. FLAGYL [Concomitant]
  2. DOXORUBICIN HCL [Concomitant]
  3. MABTHERA [Suspect]
     Indication: PRODUCT USED FOR UNKNOWN INDICATION
     Dosage: 6 CYCLES
     Route: 042
     Dates: start: 20091001, end: 20101201
  4. VINCRISTINE [Concomitant]
  5. PREDNISOLONE [Concomitant]
  6. CYCLOPHOSPHAMIDE [Concomitant]

REACTIONS (3)
  - CROHN'S DISEASE [None]
  - PANCREATITIS [None]
  - CHOLECYSTITIS [None]
